FAERS Safety Report 15005765 (Version 1)
Quarter: 2018Q2

REPORT INFORMATION
  Report Type: Spontaneous
  Country: JP (occurrence: JP)
  Receive Date: 20180613
  Receipt Date: 20180613
  Transmission Date: 20180711
  Serious: Yes (Hospitalization, Other)
  Sender: FDA-Public Use
  Company Number: JP-PFIZER INC-2018237937

PATIENT
  Age: 30 Year
  Sex: Female

DRUGS (8)
  1. ALPRAZOLAM. [Suspect]
     Active Substance: ALPRAZOLAM
     Dosage: 1.2 MG, 1X/DAY
     Route: 048
     Dates: start: 20180412
  2. TETRAMIDE [Concomitant]
     Active Substance: MIANSERIN
     Dosage: UNK
     Dates: start: 20171012
  3. ABILIFY [Suspect]
     Active Substance: ARIPIPRAZOLE
     Indication: DEPRESSION
     Dosage: 6 ML, 1X/DAY
     Route: 048
     Dates: start: 20171109, end: 201805
  4. LEXOTAN [Concomitant]
     Active Substance: BROMAZEPAM
     Dosage: UNK
     Dates: start: 20150905
  5. DOGMATYL [Suspect]
     Active Substance: SULPIRIDE
     Dosage: 600 MG, 1X/DAY
     Route: 048
     Dates: start: 20160229, end: 201805
  6. PAROXETINE. [Concomitant]
     Active Substance: PAROXETINE
     Dosage: UNK
     Dates: start: 20150608
  7. ETIZOLAM [Concomitant]
     Active Substance: ETIZOLAM
     Dosage: UNK
     Dates: start: 20171012
  8. ARIPIPRAZOLE. [Concomitant]
     Active Substance: ARIPIPRAZOLE

REACTIONS (1)
  - Deep vein thrombosis [Unknown]

NARRATIVE: CASE EVENT DATE: 20180530
